FAERS Safety Report 14666043 (Version 1)
Quarter: 2018Q1

REPORT INFORMATION
  Report Type: Spontaneous
  Country: US (occurrence: US)
  Receive Date: 20180321
  Receipt Date: 20180321
  Transmission Date: 20180509
  Serious: No
  Sender: FDA-Public Use
  Company Number: US-009507513-1803USA007181

PATIENT
  Sex: Female

DRUGS (1)
  1. EMEND [Suspect]
     Active Substance: APREPITANT
     Indication: CYCLIC VOMITING SYNDROME
     Dosage: 3 PILLS PER WEEKS
     Route: 048

REACTIONS (2)
  - Therapeutic product effective for unapproved indication [Unknown]
  - Product use in unapproved indication [Unknown]
